FAERS Safety Report 6506677-9 (Version None)
Quarter: 2009Q4

REPORT INFORMATION
  Report Type: 
  Country: None (occurrence: None)
  Receive Date: 20091221
  Receipt Date: 20091214
  Transmission Date: 20100525
  Serious: Yes (Death)
  Sender: FDA-Public Use
  Company Number: JP-ROCHE-666696

PATIENT
  Age: 44 Year
  Sex: Female

DRUGS (2)
  1. CELLCEPT [Suspect]
     Indication: CHRONIC GRAFT VERSUS HOST DISEASE
     Route: 048
  2. PREDNISOLONE [Concomitant]
     Route: 048

REACTIONS (2)
  - PNEUMONIA [None]
  - SEPSIS [None]
